FAERS Safety Report 26006479 (Version 2)
Quarter: 2025Q4

REPORT INFORMATION
  Report Type: Spontaneous
  Country: CH (occurrence: CH)
  Receive Date: 20251106
  Receipt Date: 20251205
  Transmission Date: 20260118
  Serious: Yes (Other)
  Sender: NOVARTIS
  Company Number: CH-002147023-NVSC2025CH083883

PATIENT
  Age: 70 Year
  Sex: Female

DRUGS (3)
  1. LEQVIO [Suspect]
     Active Substance: INCLISIRAN SODIUM
     Indication: Hyperlipidaemia
     Dosage: 284 MG (EVERY 6 MONTHS)
     Route: 058
     Dates: start: 2023
  2. LEQVIO [Suspect]
     Active Substance: INCLISIRAN SODIUM
     Indication: Low density lipoprotein increased
     Dosage: UNK
     Route: 065
     Dates: start: 20250414
  3. SHINGRIX [Concomitant]
     Active Substance: RECOMBINANT VARICELLA ZOSTER VIRUS (VZV) GLYCOPROTEIN E
     Indication: Product used for unknown indication
     Dosage: UNK
     Route: 065
     Dates: start: 2024

REACTIONS (11)
  - Dyshidrotic eczema [Recovered/Resolved]
  - Rash erythematous [Recovered/Resolved]
  - Blister [Recovered/Resolved]
  - Autoimmune disorder [Unknown]
  - Skin plaque [Unknown]
  - Skin lesion [Unknown]
  - Arthralgia [Unknown]
  - Nodule [Unknown]
  - Joint swelling [Recovered/Resolved]
  - Induration [Unknown]
  - Erythema nodosum [Unknown]

NARRATIVE: CASE EVENT DATE: 20240101
